FAERS Safety Report 4318974-6 (Version None)
Quarter: 2004Q1

REPORT INFORMATION
  Report Type: 
  Country: None (occurrence: None)
  Receive Date: 20040316
  Receipt Date: 20040305
  Transmission Date: 20041129
  Serious: Yes (Life-Threatening, Hospitalization)
  Sender: FDA-Public Use
  Company Number: DE-JNJFOC-20040205470

PATIENT
  Age: 69 Year
  Sex: Female
  Weight: 61 kg

DRUGS (7)
  1. RISPERDAL CONSTA [Suspect]
     Indication: SCHIZOPHRENIA
     Dosage: 25 MG, 1 IN 2 WEEK, INTRA-MUSCULAR
     Route: 030
  2. TAXILAN (PERAZINE) [Concomitant]
  3. ERGENYL CHRONO (ERGENYL CHRONO) [Concomitant]
  4. TIAPRIDEX (TIAPRIDE HYDROCHLORIDE) [Concomitant]
  5. OXAZEPAM [Concomitant]
  6. ALDACTONE [Concomitant]
  7. UNAT (TORASEMIDE) [Concomitant]

REACTIONS (5)
  - BIPOLAR DISORDER [None]
  - CARDIAC FAILURE ACUTE [None]
  - DECREASED ACTIVITY [None]
  - FATIGUE [None]
  - REGRESSIVE BEHAVIOUR [None]
